FAERS Safety Report 17658600 (Version 11)
Quarter: 2022Q2

REPORT INFORMATION
  Report Type: Report from Study
  Country: US (occurrence: US)
  Receive Date: 20200412
  Receipt Date: 20220614
  Transmission Date: 20220721
  Serious: Yes (Hospitalization, Other)
  Sender: FDA-Public Use
  Company Number: US-SA-2020SA092441

PATIENT
  Age: 91 Year
  Sex: Female

DRUGS (6)
  1. DUPILUMAB [Suspect]
     Active Substance: DUPILUMAB
     Indication: Dermatitis atopic
     Dosage: 600 MG, 1X
     Route: 058
     Dates: start: 20200303, end: 20200303
  2. DUPILUMAB [Suspect]
     Active Substance: DUPILUMAB
     Dosage: 300 MG, QOW
     Route: 058
     Dates: start: 202003
  3. DUPILUMAB [Suspect]
     Active Substance: DUPILUMAB
     Dosage: 200 MG, QOW
     Route: 058
     Dates: start: 202106
  4. DUPILUMAB [Suspect]
     Active Substance: DUPILUMAB
     Dosage: 200 MG, QOW
     Route: 058
     Dates: start: 202203
  5. COVID-19 VACCINE [Concomitant]
     Indication: COVID-19 immunisation
  6. PIMECROLIMUS [Concomitant]
     Active Substance: PIMECROLIMUS

REACTIONS (21)
  - Neoplasm malignant [Unknown]
  - Hospitalisation [Unknown]
  - Hospitalisation [Unknown]
  - Loss of consciousness [Unknown]
  - Abdominal tenderness [Unknown]
  - Urinary tract infection [Unknown]
  - Weight decreased [Unknown]
  - Acarodermatitis [Unknown]
  - Rash pruritic [Unknown]
  - Erythema [Not Recovered/Not Resolved]
  - Dizziness [Unknown]
  - Fall [Unknown]
  - Abdominal pain upper [Unknown]
  - Rash macular [Unknown]
  - Contusion [Unknown]
  - Rash [Not Recovered/Not Resolved]
  - Rash macular [Unknown]
  - Pruritus [Unknown]
  - Therapeutic response shortened [Unknown]
  - Cardiac pacemaker adjustment [Unknown]
  - Product prescribing error [Unknown]

NARRATIVE: CASE EVENT DATE: 20200101
